FAERS Safety Report 4547743-7 (Version None)
Quarter: 2005Q1

REPORT INFORMATION
  Report Type: 
  Country: None (occurrence: None)
  Receive Date: 20050107
  Receipt Date: 20041019
  Transmission Date: 20050727
  Serious: Yes (Other)
  Sender: FDA-Public Use
  Company Number: US-MERCK-0410USA03000

PATIENT
  Age: 50 Year
  Sex: Female

DRUGS (5)
  1. VIOXX [Suspect]
     Indication: ARTHRITIS
     Route: 048
     Dates: end: 20030101
  2. VIOXX [Suspect]
     Indication: NEUROPATHY
     Route: 048
     Dates: end: 20030101
  3. VIDEX [Concomitant]
     Route: 065
  4. VIRACEPT [Concomitant]
     Route: 065
  5. VIRAMUNE [Concomitant]
     Route: 065

REACTIONS (10)
  - ABDOMINAL DISTENSION [None]
  - ABDOMINAL PAIN [None]
  - ADVERSE EVENT [None]
  - CHEST PAIN [None]
  - COMA [None]
  - HIATUS HERNIA [None]
  - MELAENA [None]
  - PALPITATIONS [None]
  - PNEUMONIA [None]
  - ULCER [None]
